FAERS Safety Report 25964104 (Version 1)
Quarter: 2025Q4

REPORT INFORMATION
  Report Type: Spontaneous
  Country: BR (occurrence: BR)
  Receive Date: 20251027
  Receipt Date: 20251027
  Transmission Date: 20260117
  Serious: Yes (Other)
  Sender: TEVA
  Company Number: BR-TEVA-VS-3383944

PATIENT
  Age: 25 Year
  Sex: Female

DRUGS (3)
  1. AJOVY [Suspect]
     Active Substance: FREMANEZUMAB-VFRM
     Indication: Migraine
     Dosage: 225 MG EVERY MONTH
     Route: 065
     Dates: start: 20250701
  2. LISDEXAMFETAMINE DIMESYLATE [Concomitant]
     Active Substance: LISDEXAMFETAMINE DIMESYLATE
     Indication: Hypersomnia
     Dosage: FOR THREE YEARS
  3. VENLAFAXINE [Concomitant]
     Active Substance: VENLAFAXINE HYDROCHLORIDE
     Indication: Hypersomnia
     Dosage: FOR FOUR YEARS

REACTIONS (1)
  - Polycystic ovarian syndrome [Unknown]

NARRATIVE: CASE EVENT DATE: 20250101
